FAERS Safety Report 9744343 (Version 3)
Quarter: 2014Q1

REPORT INFORMATION
  Report Type: Spontaneous
  Country: IT (occurrence: IT)
  Receive Date: 20131210
  Receipt Date: 20140128
  Transmission Date: 20141002
  Serious: Yes (Hospitalization)
  Sender: FDA-Public Use
  Company Number: PHHY2013IT142440

PATIENT
  Age: 41 Year
  Sex: Female

DRUGS (2)
  1. AMOXICILLIN + CLAVULANATE POTASSIUM [Suspect]
     Indication: INJURY
     Dosage: 1 DF, ONCE/SINGLE
     Route: 048
     Dates: start: 20131023, end: 20131023
  2. PARACETAMOL [Suspect]
     Indication: PAIN
     Dosage: 1 G, ONCE/SINGLE
     Route: 048
     Dates: start: 20131023, end: 20131023

REACTIONS (3)
  - Dyspnoea [Recovered/Resolved]
  - Rash [Recovered/Resolved]
  - Eyelid oedema [Recovered/Resolved]
